FAERS Safety Report 7775366-5 (Version None)
Quarter: 2011Q3

REPORT INFORMATION
  Report Type: 
  Country: None (occurrence: None)
  Receive Date: 20110923
  Receipt Date: 20110923
  Transmission Date: 20111222
  Serious: Yes (Hospitalization)
  Sender: FDA-Public Use
  Company Number: None

PATIENT
  Sex: Female
  Weight: 61.2356 kg

DRUGS (6)
  1. PACLITAXEL [Concomitant]
  2. AVASTIN [Suspect]
     Indication: LUNG NEOPLASM MALIGNANT
     Dosage: EVERY 3 WKS IV
     Route: 042
     Dates: start: 20110609
  3. AVASTIN [Suspect]
     Indication: LUNG NEOPLASM MALIGNANT
     Dosage: EVERY 3 WKS IV
     Route: 042
     Dates: start: 20110509
  4. AVASTIN [Suspect]
     Indication: LUNG NEOPLASM MALIGNANT
     Dosage: EVERY 3 WKS IV
     Route: 042
     Dates: start: 20110407
  5. AVASTIN [Suspect]
     Indication: LUNG NEOPLASM MALIGNANT
     Dosage: EVERY 3 WKS IV
     Route: 042
     Dates: start: 20110428
  6. CARBOPLATIN [Concomitant]

REACTIONS (10)
  - STOMATITIS [None]
  - MOBILITY DECREASED [None]
  - FATIGUE [None]
  - DECREASED APPETITE [None]
  - MENTAL STATUS CHANGES [None]
  - COORDINATION ABNORMAL [None]
  - INCONTINENCE [None]
  - CONFUSIONAL STATE [None]
  - DYSARTHRIA [None]
  - ASTHENIA [None]
